FAERS Safety Report 4384508-3 (Version None)
Quarter: 2004Q2

REPORT INFORMATION
  Report Type: 
  Country: None (occurrence: None)
  Receive Date: 20040610
  Receipt Date: 20031111
  Transmission Date: 20050107
  Serious: Yes (Other)
  Sender: FDA-Public Use
  Company Number: A03200302737

PATIENT
  Sex: Female

DRUGS (4)
  1. ELOXATIN [Suspect]
     Indication: COLON CANCER
     Dosage: 100 MG OTHER - INTRAVENOS NOS
     Route: 042
     Dates: start: 20031111, end: 20031111
  2. ELOXATIN [Suspect]
     Indication: METASTASES TO LIVER
     Dosage: 100 MG OTHER - INTRAVENOS NOS
     Route: 042
     Dates: start: 20031111, end: 20031111
  3. DEXAMETHASONE [Concomitant]
  4. DOLASETRON MESILATE [Concomitant]

REACTIONS (6)
  - ERYTHEMA [None]
  - HEART RATE INCREASED [None]
  - HYPOTENSION [None]
  - PALLOR [None]
  - PRURITUS [None]
  - VISUAL DISTURBANCE [None]
